FAERS Safety Report 4692456-4 (Version None)
Quarter: 2005Q2

REPORT INFORMATION
  Report Type: 
  Country: None (occurrence: None)
  Receive Date: 20050613
  Receipt Date: 20050329
  Transmission Date: 20051028
  Serious: Yes (Hospitalization)
  Sender: FDA-Public Use
  Company Number: 2005-00632

PATIENT
  Age: 72 Year
  Sex: Male

DRUGS (2)
  1. VELCADE [Suspect]
     Indication: MULTIPLE MYELOMA
     Dosage: 1.30 MG/M2, 2/WEEK, INTRAVENOUS
     Route: 042
     Dates: start: 20041012, end: 20041223
  2. DOXIL [Suspect]
     Indication: MULTIPLE MYELOMA
     Dosage: 30.00 MG/M2, Q3WEEKS, INTRAVENOUS
     Route: 042
     Dates: start: 20041012, end: 20041217

REACTIONS (4)
  - CHRONIC OBSTRUCTIVE AIRWAYS DISEASE EXACERBATED [None]
  - DUODENAL ULCER HAEMORRHAGE [None]
  - DYSPNOEA [None]
  - PNEUMONIA [None]
